FAERS Safety Report 18383721 (Version 1)
Quarter: 2020Q4

REPORT INFORMATION
  Report Type: Spontaneous
  Country: GB (occurrence: GB)
  Receive Date: 20201014
  Receipt Date: 20201014
  Transmission Date: 20210114
  Serious: Yes (Hospitalization, Other)
  Sender: FDA-Public Use
  Company Number: GB-MYLANLABS-2020M1086170

PATIENT
  Age: 46 Year
  Sex: Female

DRUGS (4)
  1. CLOBAZAM. [Suspect]
     Active Substance: CLOBAZAM
     Indication: PROCEDURAL SHOCK
     Dosage: UNK
  2. DIAZEPAM. [Suspect]
     Active Substance: DIAZEPAM
     Indication: PROCEDURAL SHOCK
     Dosage: UNK
  3. FLURAZEPAM [Suspect]
     Active Substance: FLURAZEPAM HYDROCHLORIDE
     Indication: PROCEDURAL SHOCK
     Dosage: UNK
  4. ALPRAZOLAM. [Suspect]
     Active Substance: ALPRAZOLAM
     Indication: PROCEDURAL SHOCK
     Dosage: UNK

REACTIONS (4)
  - Drug withdrawal syndrome [Recovered/Resolved]
  - Product use in unapproved indication [Unknown]
  - Drug dependence [Recovered/Resolved]
  - Off label use [Unknown]
